FAERS Safety Report 15891134 (Version 5)
Quarter: 2020Q1

REPORT INFORMATION
  Report Type: Report from Study
  Country: GB (occurrence: GB)
  Receive Date: 20190130
  Receipt Date: 20200309
  Transmission Date: 20200409
  Serious: Yes (Hospitalization, Other)
  Sender: FDA-Public Use
  Company Number: GB-MYLANLABS-2019M1007817

PATIENT
  Age: 16 Year
  Sex: Female
  Weight: 51.6 kg

DRUGS (22)
  1. HUMIRA [Suspect]
     Active Substance: ADALIMUMAB
     Dosage: 40 MILLIGRAM, QW
     Route: 058
     Dates: start: 20171025, end: 20171206
  2. CHLORAL HYDRATE [Concomitant]
     Active Substance: CHLORAL HYDRATE
     Indication: ANXIETY
     Dosage: 1000 MILLIGRAM, PRN
     Route: 048
     Dates: start: 20171227, end: 20180328
  3. HUMIRA [Suspect]
     Active Substance: ADALIMUMAB
     Dosage: 40 MILLIGRAM, BIWEEKLY
     Route: 058
     Dates: start: 20180131, end: 20180228
  4. BACLOFEN. [Concomitant]
     Active Substance: BACLOFEN
     Dosage: 40 MILLIGRAM, QD
     Route: 048
     Dates: start: 20170515
  5. BACLOFEN. [Concomitant]
     Active Substance: BACLOFEN
     Dosage: 20 MILLIGRAM, QD,18.00PM AND 22.00PM
     Route: 048
     Dates: start: 20170509, end: 20170514
  6. OMEPRAZOLE. [Concomitant]
     Active Substance: OMEPRAZOLE
     Indication: CROHN^S DISEASE
     Dosage: 40 MILLIGRAM, QD
     Dates: start: 20170728, end: 20171226
  7. HYDROCORTISONE. [Concomitant]
     Active Substance: HYDROCORTISONE
     Indication: DERMATITIS
     Dosage: 1 PERCENT, QD
     Route: 061
  8. DIAZEPAM. [Concomitant]
     Active Substance: DIAZEPAM
     Indication: DYSTONIA
     Dosage: UNK, PRN, 2.5-7.5 MG, ONCE A DAY UP TO FOUR TIMES DAILY
     Route: 040
     Dates: start: 20171221, end: 20180115
  9. BACLOFEN. [Concomitant]
     Active Substance: BACLOFEN
     Indication: MUSCLE RELAXANT THERAPY
     Dosage: 15 MILLIGRAM, QD, 6AM AND 12 NOON
     Route: 048
     Dates: start: 20170509, end: 20170515
  10. BACLOFEN. [Concomitant]
     Active Substance: BACLOFEN
     Dosage: 30 MILLIGRAM, QD
     Route: 048
     Dates: start: 20170505, end: 20170509
  11. HUMIRA [Suspect]
     Active Substance: ADALIMUMAB
     Indication: CROHN^S DISEASE
     Dosage: 40 MILLIGRAM, BIWEEKLY
     Route: 058
     Dates: start: 20170221, end: 20170612
  12. HUMIRA [Suspect]
     Active Substance: ADALIMUMAB
     Dosage: 40 MILLIGRAM, QW
     Route: 058
     Dates: start: 20170808, end: 20170921
  13. HUMIRA [Suspect]
     Active Substance: ADALIMUMAB
     Dosage: 80 MILLIGRAM, QW
     Route: 058
     Dates: start: 20170927, end: 20171018
  14. CHLORAL HYDRATE [Concomitant]
     Active Substance: CHLORAL HYDRATE
     Indication: AGITATION
     Dosage: 500-1000 MG, UNK, PRN
     Route: 054
     Dates: start: 20170721, end: 20171223
  15. HYDROCORTISONE. [Concomitant]
     Active Substance: HYDROCORTISONE
     Indication: CATHETER SITE INFLAMMATION
     Dosage: 2 PERCENT, QD
     Route: 061
     Dates: start: 20171212, end: 20171222
  16. DIAZEPAM. [Concomitant]
     Active Substance: DIAZEPAM
     Dosage: 2.5 MILLIGRAM, PRN
     Route: 040
     Dates: start: 20170721, end: 20170722
  17. AZATHIOPRINE. [Suspect]
     Active Substance: AZATHIOPRINE
     Indication: CROHN^S DISEASE
     Dosage: 125 MILLIGRAM, QD
     Route: 065
     Dates: start: 20160601, end: 20170129
  18. AZATHIOPRINE. [Suspect]
     Active Substance: AZATHIOPRINE
     Dosage: 125 MILLIGRAM, QD
     Route: 048
     Dates: start: 20171020
  19. HUMIRA [Suspect]
     Active Substance: ADALIMUMAB
     Dosage: 40 MILLIGRAM, QW
     Route: 058
     Dates: start: 20170613, end: 20170620
  20. BACLOFEN. [Concomitant]
     Active Substance: BACLOFEN
     Dosage: 15 MILLIGRAM, QD
     Route: 048
     Dates: start: 20170307, end: 20170505
  21. HUMIRA [Suspect]
     Active Substance: ADALIMUMAB
     Dosage: 40 MILLIGRAM, BIWEEKLY
     Route: 058
     Dates: start: 20171220, end: 20180103
  22. HUMIRA [Suspect]
     Active Substance: ADALIMUMAB
     Dosage: 40 MILLIGRAM, BIWEEKLY
     Route: 058
     Dates: start: 20151011, end: 20170118

REACTIONS (4)
  - Bacterial sepsis [Unknown]
  - Staphylococcal sepsis [Recovered/Resolved]
  - Device related sepsis [Recovered/Resolved]
  - Small intestinal obstruction [Recovered/Resolved]

NARRATIVE: CASE EVENT DATE: 201712
